FAERS Safety Report 25214968 (Version 6)
Quarter: 2025Q3

REPORT INFORMATION
  Report Type: Spontaneous
  Country: TR (occurrence: TR)
  Receive Date: 20250418
  Receipt Date: 20250807
  Transmission Date: 20251021
  Serious: No
  Sender: PFIZER
  Company Number: TR-PFIZER INC-PV202500041788

PATIENT
  Age: 49 Year
  Sex: Female
  Weight: 64 kg

DRUGS (1)
  1. ENBREL [Suspect]
     Active Substance: ETANERCEPT
     Indication: Ankylosing spondylitis
     Dosage: 50 MG, WEEKLY
     Route: 058
     Dates: start: 2024

REACTIONS (5)
  - Patient-device incompatibility [Unknown]
  - Wrong technique in device usage process [Unknown]
  - Device leakage [Unknown]
  - Injury associated with device [Unknown]
  - Pain [Recovered/Resolved]

NARRATIVE: CASE EVENT DATE: 20250314
